FAERS Safety Report 6004829-8 (Version None)
Quarter: 2008Q4

REPORT INFORMATION
  Report Type: 
  Country: None (occurrence: None)
  Receive Date: 20081216
  Receipt Date: 20080425
  Transmission Date: 20090506
  Serious: No
  Sender: FDA-Public Use
  Company Number: US-ABBOTT-08P-163-0448792-00

PATIENT
  Sex: Female
  Weight: 70.37 kg

DRUGS (12)
  1. HUMIRA [Suspect]
     Indication: RHEUMATOID ARTHRITIS
     Route: 058
     Dates: start: 20060101
  2. METHOTREXATE [Concomitant]
     Indication: RHEUMATOID ARTHRITIS
     Route: 048
     Dates: start: 20060101
  3. HYDROCODONE BITARTRATE [Concomitant]
     Indication: PAIN
     Dosage: 5/500 PRN
     Route: 048
     Dates: start: 19880101
  4. CELECOXIB [Concomitant]
     Indication: RHEUMATOID ARTHRITIS
     Route: 048
  5. OMEPRAZOLE [Concomitant]
     Indication: PROPHYLAXIS AGAINST GASTROINTESTINAL ULCER
     Route: 048
  6. FLUOXETINE HYDROCHLORIDE [Concomitant]
     Indication: DRUG USE FOR UNKNOWN INDICATION
     Route: 048
  7. LIDOCAINE [Concomitant]
     Indication: PAIN
     Route: 062
  8. TIZANIDINE HYDROCHLORIDE [Concomitant]
     Indication: PAIN
     Route: 048
  9. CYCLOBENZAPRINE HCL [Concomitant]
     Indication: PAIN
     Route: 048
  10. SERETIDE [Concomitant]
     Indication: ASTHMA
     Route: 048
  11. TOCOPHEROL CONCENTRATE CAP [Concomitant]
     Indication: DRUG USE FOR UNKNOWN INDICATION
  12. CALCIUM WITH VITAMIN D [Concomitant]
     Indication: DRUG USE FOR UNKNOWN INDICATION
     Route: 048

REACTIONS (4)
  - ACCIDENTAL EXPOSURE [None]
  - SCRATCH [None]
  - THERAPEUTIC RESPONSE DELAYED [None]
  - URTICARIA [None]
